FAERS Safety Report 4356068-4 (Version None)
Quarter: 2004Q2

REPORT INFORMATION
  Report Type: 
  Country: None (occurrence: None)
  Receive Date: 20040429
  Receipt Date: 20030325
  Transmission Date: 20050107
  Serious: Yes (Other)
  Sender: FDA-Public Use
  Company Number: 1670670A

PATIENT
  Sex: Female

DRUGS (1)
  1. IMODIUM A-D [Suspect]
     Dosage: 0.5 MG, BID, PO
     Route: 048

REACTIONS (3)
  - GINGIVAL BLEEDING [None]
  - GINGIVITIS [None]
  - THROAT IRRITATION [None]
